FAERS Safety Report 22055240 (Version 1)
Quarter: 2023Q1

REPORT INFORMATION
  Report Type: Spontaneous
  Country: US (occurrence: None)
  Receive Date: 20230301
  Receipt Date: 20230301
  Transmission Date: 20230417
  Serious: Yes (Other)
  Sender: FDA-Public Use
  Company Number: None

PATIENT
  Age: 54 Year
  Sex: Male
  Weight: 81 kg

DRUGS (2)
  1. VISINE RED EYE HYDRATING COMFORT EYE DROPS [Suspect]
     Active Substance: POLYETHYLENE GLYCOL 400\TETRAHYDROZOLINE HYDROCHLORIDE
     Indication: Eye pruritus
     Dosage: OTHER STRENGTH : N/A;?OTHER QUANTITY : 2 DROP(S);?FREQUENCY : 4 TIMES A DAY;?
     Route: 047
     Dates: start: 20220901, end: 20230301
  2. PRILOSEC [Concomitant]
     Active Substance: OMEPRAZOLE MAGNESIUM

REACTIONS (2)
  - Product use complaint [None]
  - Scleral disorder [None]

NARRATIVE: CASE EVENT DATE: 20230301
